FAERS Safety Report 6017240-0 (Version None)
Quarter: 2008Q4

REPORT INFORMATION
  Report Type: 
  Country: None (occurrence: None)
  Receive Date: 20081222
  Receipt Date: 20081205
  Transmission Date: 20090506
  Serious: Yes (Hospitalization)
  Sender: FDA-Public Use
  Company Number: PAR_02459_2008

PATIENT
  Age: 74 Year
  Sex: Female

DRUGS (1)
  1. MEGESTROL ACETATE [Suspect]
     Indication: BREAST CANCER STAGE III
     Dosage: (160 MG BID) ;
     Dates: end: 20070701

REACTIONS (10)
  - ADRENAL INSUFFICIENCY [None]
  - ALTERED STATE OF CONSCIOUSNESS [None]
  - ASTHENIA [None]
  - CEREBELLAR SYNDROME [None]
  - GAIT DISTURBANCE [None]
  - HYPERKALAEMIA [None]
  - HYPONATRAEMIA [None]
  - NEOPLASM PROGRESSION [None]
  - PERICARDIAL EFFUSION [None]
  - SEROSITIS [None]
